FAERS Safety Report 8864098 (Version 1)
Quarter: 2012Q4

REPORT INFORMATION
  Report Type: 
  Country: US (occurrence: US)
  Receive Date: 20121024
  Receipt Date: 20121024
  Transmission Date: 20130627
  Serious: No
  Sender: FDA-Public Use
  Company Number: US-AMGEN-USASP2011065870

PATIENT
  Age: 57 Year
  Sex: Male

DRUGS (7)
  1. ENBREL [Suspect]
     Indication: PRODUCT USED FOR UNKNOWN INDICATION
     Dosage: 50 mg, qwk
     Route: 058
  2. LIPITOR [Concomitant]
     Dosage: 10 mg, UNK
  3. LAMICTAL [Concomitant]
     Dosage: 25 mg, UNK
  4. AMBIEN [Concomitant]
     Dosage: 5 mg, UNK
  5. ACIPHEX [Concomitant]
     Dosage: 20 mg, UNK
  6. FISH OIL [Concomitant]
  7. EPICERAM [Concomitant]

REACTIONS (1)
  - Sciatica [Unknown]
